FAERS Safety Report 23307389 (Version 1)
Quarter: 2023Q4

REPORT INFORMATION
  Report Type: Spontaneous
  Country: AU (occurrence: AU)
  Receive Date: 20231218
  Receipt Date: 20231218
  Transmission Date: 20240110
  Serious: Yes (Death)
  Sender: FDA-Public Use
  Company Number: AU-CIPLA LTD.-2023AU08007

PATIENT

DRUGS (6)
  1. PREGABALIN [Suspect]
     Active Substance: PREGABALIN
     Dosage: UNK
     Route: 065
  2. AMITRIPTYLINE [Suspect]
     Active Substance: AMITRIPTYLINE
     Dosage: UNK
     Route: 065
  3. DIAZEPAM [Suspect]
     Active Substance: DIAZEPAM
     Dosage: UNK
     Route: 065
  4. OXAZEPAM [Suspect]
     Active Substance: OXAZEPAM
     Dosage: UNK
     Route: 065
  5. TEMAZEPAM [Suspect]
     Active Substance: TEMAZEPAM
     Dosage: UNK
     Route: 065
  6. TRAMADOL HYDROCHLORIDE [Suspect]
     Active Substance: TRAMADOL HYDROCHLORIDE
     Dosage: UNK
     Route: 065

REACTIONS (2)
  - Toxicity to various agents [Fatal]
  - Intentional overdose [Fatal]

NARRATIVE: CASE EVENT DATE: 20200901
